FAERS Safety Report 9114800 (Version 1)
Quarter: 2013Q1

REPORT INFORMATION
  Report Type: Spontaneous
  Country: US (occurrence: US)
  Receive Date: 20130129
  Receipt Date: 20130129
  Transmission Date: 20140127
  Serious: No
  Sender: FDA-Public Use
  Company Number: US-PFIZER INC-2013032029

PATIENT
  Age: 69 Year
  Sex: Female

DRUGS (1)
  1. NORVASC [Suspect]
     Dosage: 5 MG, UNK

REACTIONS (4)
  - Hypersensitivity [Unknown]
  - Burning sensation [Unknown]
  - Pruritus [Unknown]
  - Erythema [Unknown]
